FAERS Safety Report 7604717-7 (Version None)
Quarter: 2011Q3

REPORT INFORMATION
  Report Type: 
  Country: None (occurrence: None)
  Receive Date: 20110712
  Receipt Date: 20110629
  Transmission Date: 20111222
  Serious: Yes (Other)
  Sender: FDA-Public Use
  Company Number: JP-CELGENEUS-087-21880-10121745

PATIENT
  Sex: Male
  Weight: 57 kg

DRUGS (34)
  1. TRICHLORMETHIAZIDE [Concomitant]
     Dosage: 1 MILLIGRAM
     Route: 048
     Dates: start: 20101202
  2. SODIUM POLYSTYRENE SULFONATE [Concomitant]
     Dosage: 75 GRAM
     Route: 048
     Dates: start: 20101202
  3. SODIUM POLYSTYRENE SULFONATE [Concomitant]
     Dosage: 50 GRAM
     Route: 048
     Dates: start: 20110106
  4. ASPIRIN [Concomitant]
     Indication: PROPHYLAXIS
     Dosage: 100 MILLIGRAM
     Route: 048
     Dates: start: 20100930
  5. ASPIRIN [Concomitant]
     Dosage: 100 MILLIGRAM
     Route: 048
     Dates: start: 20110106, end: 20110413
  6. REVLIMID [Suspect]
     Dosage: 5 MILLIGRAM
     Route: 048
     Dates: start: 20101028
  7. DEXAMETHASONE [Suspect]
     Dosage: 20 MILLIGRAM
     Route: 048
     Dates: start: 20110106, end: 20110201
  8. BASEN [Concomitant]
     Indication: DIABETES MELLITUS
     Dosage: .9 MILLIGRAM
     Route: 048
  9. BASEN [Concomitant]
     Dosage: .9 MILLIGRAM
     Route: 048
     Dates: start: 20101202
  10. SENNOSIDE [Concomitant]
     Dosage: 24 MILLIGRAM
     Route: 048
     Dates: start: 20101202
  11. PANTOSIN [Concomitant]
     Dosage: 180 MILLIGRAM
     Route: 048
     Dates: start: 20100514
  12. ASPIRIN [Concomitant]
     Dosage: 100 MILLIGRAM
     Route: 048
     Dates: start: 20101202
  13. DEXAMETHASONE [Suspect]
     Indication: MULTIPLE MYELOMA
     Dosage: 40 MILLIGRAM
     Route: 048
     Dates: start: 20100930, end: 20101117
  14. ALLOZYM [Concomitant]
     Dosage: 100 MILLIGRAM
     Route: 048
     Dates: start: 20110106
  15. AMLODIPINE [Concomitant]
     Dosage: 5 MILLIGRAM
     Route: 048
     Dates: start: 20101202
  16. TRICHLORMETHIAZIDE [Concomitant]
     Dosage: 1 MILLIGRAM
     Route: 048
     Dates: start: 20110106
  17. SENNOSIDE [Concomitant]
     Dosage: 24 MILLIGRAM
     Route: 048
     Dates: start: 20110106
  18. ACETAMINOPHEN [Concomitant]
     Dosage: 800 MILLIGRAM
     Route: 048
     Dates: start: 20101202
  19. REVLIMID [Suspect]
     Indication: MULTIPLE MYELOMA
     Dosage: 5 MILLIGRAM
     Route: 048
     Dates: start: 20100930, end: 20101017
  20. SENNOSIDE [Concomitant]
     Dosage: 24 MILLIGRAM
     Route: 048
     Dates: start: 20100108
  21. SODIUM POLYSTYRENE SULFONATE [Concomitant]
     Indication: RENAL FAILURE CHRONIC
     Dosage: 75 GRAM
     Route: 048
     Dates: start: 20091126
  22. PANTOSIN [Concomitant]
     Dosage: 180 MILLIGRAM
     Route: 048
     Dates: start: 20101202
  23. AMLODIPINE [Concomitant]
     Dosage: 5 MILLIGRAM
     Route: 048
     Dates: start: 20110106
  24. TRICHLORMETHIAZIDE [Concomitant]
     Indication: HYPERTENSION
     Dosage: 1 MILLIGRAM
     Route: 048
     Dates: start: 20100825
  25. ALLOZYM [Concomitant]
     Dosage: 100 MILLIGRAM
     Route: 048
     Dates: start: 20101202
  26. AMLODIPINE [Concomitant]
     Indication: HYPERTENSION
     Dosage: 5 MILLIGRAM
     Route: 048
  27. ACETAMINOPHEN [Concomitant]
     Dosage: 800 MILLIGRAM
     Route: 048
     Dates: start: 20100122
  28. ACETAMINOPHEN [Concomitant]
     Dosage: 800 MILLIGRAM
     Route: 048
     Dates: start: 20110106
  29. REVLIMID [Suspect]
     Dosage: 5 MILLIGRAM
     Route: 048
     Dates: start: 20101202, end: 20101222
  30. REVLIMID [Suspect]
     Dosage: 5 MILLIGRAM
     Route: 048
     Dates: start: 20110106, end: 20110201
  31. REVLIMID [Suspect]
     Dosage: 5 MILLIGRAM
     Route: 048
     Dates: start: 20110224, end: 20110309
  32. ALLOZYM [Concomitant]
     Dosage: 100 MILLIGRAM
     Route: 048
     Dates: start: 20070419
  33. BASEN [Concomitant]
     Dosage: .9 MILLIGRAM
     Route: 048
     Dates: start: 20110106
  34. PANTOSIN [Concomitant]
     Dosage: 180 MILLIGRAM
     Route: 048
     Dates: start: 20110106

REACTIONS (5)
  - ANAEMIA [None]
  - DELIRIUM [None]
  - HEPATIC FUNCTION ABNORMAL [None]
  - THROMBOCYTOPENIA [None]
  - NEUTROPENIA [None]
